FAERS Safety Report 9052561 (Version 2)
Quarter: 2013Q1

REPORT INFORMATION
  Report Type: Spontaneous
  Country: IT (occurrence: IT)
  Receive Date: 20130207
  Receipt Date: 20130315
  Transmission Date: 20140127
  Serious: Yes (Hospitalization)
  Sender: FDA-Public Use
  Company Number: IT-BRISTOL-MYERS SQUIBB COMPANY-17330853

PATIENT
  Age: 72 Year
  Sex: Female
  Weight: 50 kg

DRUGS (12)
  1. KARVEA [Suspect]
     Indication: HYPERTENSION
     Route: 048
     Dates: start: 20120601, end: 20130109
  2. LANOXIN [Suspect]
     Indication: ARRHYTHMIA
     Route: 048
     Dates: start: 20120601, end: 20130109
  3. ALDACTONE [Suspect]
     Indication: HYPERTENSION
     Route: 048
     Dates: start: 20120601, end: 20130109
  4. TAREG [Suspect]
     Indication: HYPERTENSION
     Route: 048
     Dates: start: 20120601, end: 20130109
  5. LASIX [Concomitant]
     Route: 048
  6. LIBRADIN [Concomitant]
     Route: 048
  7. CONGESCOR [Concomitant]
     Route: 048
  8. SOLOSA [Concomitant]
     Route: 049
  9. NITRODERM [Concomitant]
     Dosage: DIE PATCHES
     Route: 048
  10. DIBASE [Concomitant]
     Dosage: 1DF: 10.000 UI/ML DROPS^ DOSAGE/20/GTT/
     Route: 048
  11. NATECAL D [Concomitant]
     Dosage: 1DF: 600 MG + 400 UI TABLETS
     Route: 048
  12. ARIMIDEX [Concomitant]
     Dosage: TABS
     Route: 048

REACTIONS (7)
  - Nodal arrhythmia [Recovering/Resolving]
  - Renal failure acute [Recovering/Resolving]
  - Cardioactive drug level increased [Recovering/Resolving]
  - Nodal arrhythmia [None]
  - Toxicity to various agents [None]
  - Conduction disorder [None]
  - Bradycardia [None]
